FAERS Safety Report 14892820 (Version 1)
Quarter: 2018Q2

REPORT INFORMATION
  Report Type: Report from Study
  Country: US (occurrence: US)
  Receive Date: 20180514
  Receipt Date: 20180514
  Transmission Date: 20180711
  Serious: Yes (Disabling, Other)
  Sender: FDA-Public Use
  Company Number: PHEH2018US018342

PATIENT
  Sex: Male

DRUGS (1)
  1. ENTRESTO [Suspect]
     Active Substance: SACUBITRIL\VALSARTAN
     Indication: PRODUCT USED FOR UNKNOWN INDICATION
     Route: 065

REACTIONS (7)
  - Dizziness [Unknown]
  - Heart rate decreased [Unknown]
  - Weight decreased [Unknown]
  - Hypotension [Unknown]
  - Memory impairment [Unknown]
  - Myocardial infarction [Unknown]
  - Malaise [Unknown]
